FAERS Safety Report 6968573-2 (Version None)
Quarter: 2010Q3

REPORT INFORMATION
  Report Type: 
  Country: None (occurrence: None)
  Receive Date: 20100907
  Receipt Date: 20100831
  Transmission Date: 20110219
  Serious: Yes (Hospitalization)
  Sender: FDA-Public Use
  Company Number: HU-ROCHE-724831

PATIENT
  Sex: Male
  Weight: 62 kg

DRUGS (5)
  1. RIBAVIRIN [Suspect]
     Indication: PRODUCT USED FOR UNKNOWN INDICATION
     Route: 048
     Dates: start: 20100325
  2. RIBAVIRIN [Suspect]
     Dosage: DOSE REDUCED.
     Route: 048
     Dates: start: 20100830
  3. AMLODIPINE [Concomitant]
  4. TRIMETAZIDINE [Concomitant]
  5. NEBIVOLOL [Concomitant]

REACTIONS (1)
  - SYNCOPE [None]
